FAERS Safety Report 10232490 (Version 1)
Quarter: 2014Q2

REPORT INFORMATION
  Report Type: Spontaneous
  Country: US (occurrence: None)
  Receive Date: 20140610
  Receipt Date: 20140610
  Transmission Date: 20141212
  Serious: Yes (Hospitalization)
  Sender: FDA-Public Use
  Company Number: AEGR000504

PATIENT
  Age: 78 Year
  Sex: Female
  Weight: 54.4 kg

DRUGS (10)
  1. JUXTAPID [Suspect]
     Indication: TYPE IIA HYPERLIPIDAEMIA
     Route: 048
     Dates: start: 20140326
  2. OMEPRAZOLE (OMEPRAZOLE) [Concomitant]
  3. POTASSIUM (POTASSIUM) [Concomitant]
  4. FUROSEMIDE (FUROSEMIDE) [Concomitant]
  5. CLONAZEPAM (CLONAZEPAM) [Concomitant]
  6. LOVAZA (OMEGA-3-ACID ETHYL ESTER) [Concomitant]
  7. CALCIUM (CALCIUM) [Concomitant]
  8. ASA (ACETYLSALICYLIC ACID) [Concomitant]
  9. ZETIA (EZETIMIBE) [Concomitant]
  10. VITAMIN D (COLECALCIFEROL) [Concomitant]

REACTIONS (1)
  - Pneumonia [None]
